FAERS Safety Report 20981882 (Version 1)
Quarter: 2022Q2

REPORT INFORMATION
  Report Type: Spontaneous
  Country: GR (occurrence: GR)
  Receive Date: 20220620
  Receipt Date: 20220620
  Transmission Date: 20220721
  Serious: Yes (Hospitalization)
  Sender: FDA-Public Use
  Company Number: GR-ELI_LILLY_AND_COMPANY-GR202206004766

PATIENT
  Age: 52 Year
  Sex: Female

DRUGS (4)
  1. ZYPADHERA [Suspect]
     Active Substance: OLANZAPINE PAMOATE
     Indication: Schizophrenia
     Dosage: 300 MG, OTHER (EVERY 4 WEEKS)
     Route: 030
     Dates: start: 201911
  2. ZYPADHERA [Suspect]
     Active Substance: OLANZAPINE PAMOATE
     Indication: Schizophrenia
     Dosage: 300 MG, OTHER (EVERY 4 WEEKS)
     Route: 030
     Dates: start: 201911
  3. ZYPADHERA [Suspect]
     Active Substance: OLANZAPINE PAMOATE
     Indication: Schizophrenia
     Dosage: 300 MG, OTHER (EVERY 4 WEEKS)
     Route: 030
     Dates: start: 201911
  4. METHADONE [Concomitant]
     Active Substance: METHADONE HYDROCHLORIDE
     Indication: Toxicity to various agents
     Dosage: UNK

REACTIONS (5)
  - Hypotonia [Recovered/Resolved]
  - Lethargy [Recovered/Resolved]
  - Post-injection delirium sedation syndrome [Recovered/Resolved]
  - Confusional state [Recovered/Resolved]
  - Memory impairment [Unknown]

NARRATIVE: CASE EVENT DATE: 20220607
